FAERS Safety Report 4319227-2 (Version None)
Quarter: 2004Q1

REPORT INFORMATION
  Report Type: 
  Country: None (occurrence: None)
  Receive Date: 20040316
  Receipt Date: 20040302
  Transmission Date: 20041129
  Serious: Yes (Hospitalization)
  Sender: FDA-Public Use
  Company Number: 04P-167-0252376

PATIENT
  Age: 55 Year
  Sex: Female
  Weight: 55 kg

DRUGS (10)
  1. HUMIRA [Suspect]
     Indication: RHEUMATOID ARTHRITIS
     Dosage: 40 MG, 1 IN 2 WK, SUBCUTANEOUS
     Route: 058
     Dates: start: 20030514, end: 20030625
  2. ACETAMINOPHEN [Concomitant]
  3. ATENOLOL [Concomitant]
  4. ATORVASTATIN [Concomitant]
  5. OMEPRAZOLE [Concomitant]
  6. ROFECOXIB [Concomitant]
  7. ASPIRIN [Concomitant]
  8. METOCLOPRAMIDE [Concomitant]
  9. MAVICOL [Concomitant]
  10. TRAMADOL HCL [Concomitant]

REACTIONS (1)
  - URINARY RETENTION [None]
